FAERS Safety Report 5574367-5 (Version None)
Quarter: 2007Q4

REPORT INFORMATION
  Report Type: 
  Country: None (occurrence: None)
  Receive Date: 20071227
  Receipt Date: 20071219
  Transmission Date: 20080405
  Serious: Yes (Hospitalization)
  Sender: FDA-Public Use
  Company Number: FR-JNJFOC-20071204608

PATIENT
  Age: 89 Year
  Sex: Male

DRUGS (14)
  1. TAVANIC [Suspect]
     Indication: BRONCHITIS
     Route: 042
  2. ALLOPURINOL [Suspect]
     Indication: DRUG USE FOR UNKNOWN INDICATION
     Route: 048
  3. ROCEPHIN [Suspect]
     Indication: BRONCHITIS
     Route: 042
  4. AUGMENTIN '250' [Suspect]
     Indication: BRONCHITIS
     Route: 048
  5. INEXIUM [Concomitant]
     Route: 065
  6. AMIODARONE HCL [Concomitant]
     Route: 065
  7. RAMIPRIL [Concomitant]
     Route: 065
  8. LEXOMIL [Concomitant]
     Route: 065
  9. STILNOX [Concomitant]
     Route: 065
  10. BURINEX [Concomitant]
     Route: 065
  11. PLAVIX [Concomitant]
     Route: 065
  12. LEVOTHYROX [Concomitant]
     Route: 065
  13. TRAMADOL HCL [Concomitant]
     Route: 065
  14. NITRODERM [Concomitant]
     Route: 065

REACTIONS (1)
  - PURPURA [None]
